FAERS Safety Report 8845297 (Version 1)
Quarter: 2012Q4

REPORT INFORMATION
  Report Type: 
  Country: CN (occurrence: None)
  Receive Date: 20121015
  Receipt Date: 20121015
  Transmission Date: 20130627
  Serious: No
  Sender: FDA-Public Use
  Company Number: AETWN201200075

PATIENT
  Age: 1 Day
  Weight: 3.53 kg

DRUGS (1)
  1. HYPERRHO [Suspect]
     Route: 030

REACTIONS (3)
  - Drug administration error [None]
  - Jaundice [None]
  - Blood bilirubin increased [None]
